FAERS Safety Report 5051096-8 (Version None)
Quarter: 2006Q3

REPORT INFORMATION
  Report Type: 
  Country: None (occurrence: None)
  Receive Date: 20060710
  Receipt Date: 20060627
  Transmission Date: 20061208
  Serious: Yes (Other)
  Sender: FDA-Public Use
  Company Number: 2006081114

PATIENT
  Age: 46 Year
  Sex: Male
  Weight: 77.1115 kg

DRUGS (3)
  1. LYRICA [Suspect]
     Indication: NEURALGIA
     Dosage: 150 MG, (75 MG, 2 IN 1 D)
     Dates: start: 20060601
  2. WELLBUTRIN [Concomitant]
  3. BENICAR [Concomitant]

REACTIONS (6)
  - CONFUSIONAL STATE [None]
  - COORDINATION ABNORMAL [None]
  - DIZZINESS [None]
  - MEMORY IMPAIRMENT [None]
  - SOMNOLENCE [None]
  - VISION BLURRED [None]
